FAERS Safety Report 20524521 (Version 4)
Quarter: 2022Q2

REPORT INFORMATION
  Report Type: Spontaneous
  Country: US (occurrence: US)
  Receive Date: 20220228
  Receipt Date: 20220516
  Transmission Date: 20220721
  Serious: No
  Sender: FDA-Public Use
  Company Number: US-SA-SAC20220222000166

PATIENT
  Age: 73 Year
  Sex: Female

DRUGS (1)
  1. DUPIXENT [Suspect]
     Active Substance: DUPILUMAB
     Indication: Dermatitis atopic
     Dosage: 300 MG, QOW
     Route: 058
     Dates: start: 20220112

REACTIONS (8)
  - Peripheral swelling [Unknown]
  - Discomfort [Not Recovered/Not Resolved]
  - Skin exfoliation [Unknown]
  - Rash erythematous [Unknown]
  - Eye irritation [Not Recovered/Not Resolved]
  - Oral herpes [Unknown]
  - Dermatitis atopic [Not Recovered/Not Resolved]
  - Rash [Not Recovered/Not Resolved]
